FAERS Safety Report 17267294 (Version 3)
Quarter: 2020Q1

REPORT INFORMATION
  Report Type: Spontaneous
  Country: US (occurrence: US)
  Receive Date: 20200114
  Receipt Date: 20200205
  Transmission Date: 20200409
  Serious: Yes (Other)
  Sender: FDA-Public Use
  Company Number: US-SA-2020SA006664

PATIENT
  Age: 67 Year
  Sex: Female
  Weight: 72 kg

DRUGS (2)
  1. ZANTAC 75 [Suspect]
     Active Substance: RANITIDINE HYDROCHLORIDE
     Dosage: 2 DF, QD
     Dates: start: 20180918
  2. ZANTAC 75 [Suspect]
     Active Substance: RANITIDINE HYDROCHLORIDE
     Indication: DYSPEPSIA
     Dosage: UNK
     Route: 065
     Dates: start: 20180615

REACTIONS (6)
  - Rhinalgia [Unknown]
  - Eye pain [Unknown]
  - Haemorrhage [Unknown]
  - Malaise [Unknown]
  - Nasal ulcer [Unknown]
  - Cough [Unknown]

NARRATIVE: CASE EVENT DATE: 201810
